FAERS Safety Report 15954217 (Version 2)
Quarter: 2019Q2

REPORT INFORMATION
  Report Type: Spontaneous
  Country: FR (occurrence: FR)
  Receive Date: 20190213
  Receipt Date: 20190529
  Transmission Date: 20190711
  Serious: Yes (Hospitalization)
  Sender: FDA-Public Use
  Company Number: FR-AUROBINDO-AUR-APL-2019-006383

PATIENT

DRUGS (6)
  1. DEPAKINE [Suspect]
     Active Substance: VALPROATE SODIUM
     Indication: BEHAVIOUR DISORDER
     Dosage: 1100 MILLIGRAM, DAILY ((200MG/ML) 300MG-300MG-500MG)
     Route: 048
     Dates: start: 20181003, end: 20190107
  2. LOSARTAN. [Suspect]
     Active Substance: LOSARTAN
     Indication: HYPERTENSION
     Dosage: 50 MILLIGRAM, DAILY (1-0-0)
     Route: 048
     Dates: start: 20181003
  3. MIANSERIN ARROW FILM-COATED TABLET 30MG [Suspect]
     Active Substance: MIANSERIN HYDROCHLORIDE
     Indication: DEPRESSION
     Dosage: 90 MILLIGRAM, DAILY (1-0-2)
     Route: 048
     Dates: start: 20181003, end: 20190107
  4. MELATONIN [Suspect]
     Active Substance: MELATONIN
     Indication: SOMNOLENCE
     Dosage: 5 MILLIGRAM, DAILY (0-0-1)
     Route: 048
     Dates: start: 20181003
  5. MOVICOL [Suspect]
     Active Substance: POLYETHYLENE GLYCOL 3350\POTASSIUM CHLORIDE\SODIUM BICARBONATE\SODIUM CHLORIDE
     Indication: CONSTIPATION
     Dosage: 1 DOSAGE FORM, DAILY
     Route: 048
     Dates: start: 20181003
  6. LOXAPAC [Suspect]
     Active Substance: LOXAPINE
     Indication: BEHAVIOUR DISORDER
     Dosage: 7 GTT DROPS, DAILY ((25MG / ML) -2-2-3 (DROPS))
     Route: 048
     Dates: start: 20190102, end: 20190107

REACTIONS (1)
  - Sedation complication [Recovered/Resolved]

NARRATIVE: CASE EVENT DATE: 20190107
